FAERS Safety Report 7945477-X (Version None)
Quarter: 2011Q4

REPORT INFORMATION
  Report Type: 
  Country: None (occurrence: None)
  Receive Date: 20111129
  Receipt Date: 20111117
  Transmission Date: 20120403
  Serious: Yes (Hospitalization)
  Sender: FDA-Public Use
  Company Number: JP-AMGEN-JPNCT2011050267

PATIENT
  Age: 64 Year
  Sex: Male
  Weight: 54 kg

DRUGS (27)
  1. FLUOROURACIL [Concomitant]
     Dosage: 625 MG, UNK
     Route: 040
     Dates: start: 20101130, end: 20110511
  2. LEVOLEUCOVORIN CALCIUM [Concomitant]
     Indication: COLORECTAL CANCER
     Route: 041
     Dates: start: 20100921, end: 20101019
  3. RIBOFLAVIN TAB [Concomitant]
     Dosage: UNK
     Route: 048
  4. PANITUMUMAB [Suspect]
     Dosage: 6 MG/KG, Q2WK
     Route: 041
     Dates: start: 20110405, end: 20110405
  5. LEVOLEUCOVORIN CALCIUM [Concomitant]
     Dosage: 320 MG, UNK
     Route: 041
     Dates: start: 20101130, end: 20110511
  6. OXALIPLATIN [Concomitant]
     Indication: COLORECTAL CANCER
     Route: 041
     Dates: start: 20100921, end: 20101019
  7. DECADRON [Concomitant]
     Dosage: UNK
     Route: 048
  8. PANITUMUMAB [Suspect]
     Dosage: 6 MG/KG, Q2WK
     Route: 041
     Dates: start: 20110511, end: 20110511
  9. OXALIPLATIN [Concomitant]
     Route: 041
     Dates: start: 20101130, end: 20110511
  10. ZOFRAN [Concomitant]
     Route: 048
  11. LOCOID [Concomitant]
     Dosage: UNK
     Route: 062
  12. ANTEBATE [Concomitant]
     Dosage: UNK
     Route: 062
  13. AZUNOL [Concomitant]
     Dosage: UNK
     Route: 049
  14. LENDORMIN D [Concomitant]
     Route: 048
  15. GOSHAJINKIGAN [Concomitant]
     Dosage: UNK
     Route: 048
  16. FLUOROURACIL [Concomitant]
     Indication: COLORECTAL CANCER
     Route: 040
     Dates: start: 20100921, end: 20101019
  17. FLUOROURACIL [Concomitant]
     Route: 041
     Dates: start: 20100921, end: 20101019
  18. CORTICOSTEROIDS [Concomitant]
     Indication: PROPHYLAXIS
     Dosage: UNK
     Route: 065
  19. METHYCOBAL [Concomitant]
     Dosage: UNK
     Route: 048
  20. PYDOXAL [Concomitant]
     Dosage: UNK
     Route: 048
  21. PANITUMUMAB [Suspect]
     Indication: COLORECTAL CANCER
     Dosage: 6 MG/KG, Q2WK
     Route: 041
     Dates: start: 20100921, end: 20101019
  22. PANITUMUMAB [Suspect]
     Dosage: 6 MG/KG, Q2WK
     Route: 041
     Dates: start: 20110201, end: 20110201
  23. PANITUMUMAB [Suspect]
     Dosage: 6 MG/KG, Q2WK
     Route: 041
     Dates: start: 20110301, end: 20110301
  24. PANITUMUMAB [Suspect]
     Dosage: 6 MG/KG, Q2WK
     Route: 041
     Dates: start: 20110902
  25. LANSOPRAZOLE [Concomitant]
     Dosage: UNK
     Route: 048
  26. PANITUMUMAB [Suspect]
     Dosage: 6 MG/KG, Q2WK
     Route: 041
     Dates: start: 20101130, end: 20101214
  27. FLUOROURACIL [Concomitant]
     Dosage: 3750 MG, UNK
     Route: 041
     Dates: start: 20101130, end: 20110511

REACTIONS (3)
  - DERMATITIS ACNEIFORM [None]
  - DIABETIC KETOACIDOSIS [None]
  - STOMATITIS [None]
